FAERS Safety Report 9049654 (Version 3)
Quarter: 2013Q3

REPORT INFORMATION
  Report Type: Report from Study
  Country: US (occurrence: US)
  Receive Date: 20130205
  Receipt Date: 20130801
  Transmission Date: 20140515
  Serious: Yes (Hospitalization, Other)
  Sender: FDA-Public Use
  Company Number: US-ELI_LILLY_AND_COMPANY-US201301008585

PATIENT
  Age: 76 Year
  Sex: Female

DRUGS (3)
  1. TERIPARATIDE [Suspect]
     Indication: OSTEOPOROSIS
     Dosage: 20 UG, QD
     Dates: start: 20121218
  2. TERIPARATIDE [Suspect]
     Dosage: 20 UG, QD
     Dates: start: 20121218
  3. TERIPARATIDE [Suspect]
     Dosage: UNK, QD
     Dates: start: 20121226

REACTIONS (15)
  - Concussion [Unknown]
  - Fall [Unknown]
  - Blood pressure increased [Unknown]
  - Transient ischaemic attack [Unknown]
  - Eye disorder [Unknown]
  - Blood pressure increased [Unknown]
  - Hypertensive crisis [Unknown]
  - Tremor [Unknown]
  - Rash [Unknown]
  - Injection site discomfort [Unknown]
  - Injection site bruising [Unknown]
  - Drug dose omission [Unknown]
  - Nausea [Unknown]
  - Vomiting [Unknown]
  - Dysarthria [Unknown]
